FAERS Safety Report 8208733-6 (Version None)
Quarter: 2012Q1

REPORT INFORMATION
  Report Type: 
  Country: None (occurrence: None)
  Receive Date: 20120314
  Receipt Date: 20120306
  Transmission Date: 20120608
  Serious: Yes (Hospitalization)
  Sender: FDA-Public Use
  Company Number: US-BAYER-2010-002147

PATIENT
  Age: 28 Year
  Sex: Female
  Weight: 117.91 kg

DRUGS (3)
  1. YAZ [Suspect]
     Dosage: UNK
     Dates: start: 20040101, end: 20080801
  2. ALBUTEROL [Concomitant]
  3. YASMIN [Suspect]
     Dosage: UNK
     Dates: start: 20040101, end: 20080801

REACTIONS (2)
  - PULMONARY EMBOLISM [None]
  - DEEP VEIN THROMBOSIS [None]
